FAERS Safety Report 7505518-0 (Version None)
Quarter: 2011Q2

REPORT INFORMATION
  Report Type: 
  Country: None (occurrence: None)
  Receive Date: 20110526
  Receipt Date: 20110519
  Transmission Date: 20111010
  Serious: Yes (Hospitalization)
  Sender: FDA-Public Use
  Company Number: FR-B.I. PHARMACEUTICALS,INC./RIDGEFIELD-2011-FF-00507FF

PATIENT
  Sex: Female

DRUGS (5)
  1. VENTOLIN [Suspect]
     Dosage: ONE DOSE 100 MCG AS REQUIRED
     Route: 055
     Dates: start: 20101224, end: 20101225
  2. PREDNISOLONE [Concomitant]
     Dates: start: 20101225
  3. ATROVENT [Suspect]
     Route: 055
     Dates: start: 20101225, end: 20101225
  4. BRICANYL [Suspect]
     Route: 055
     Dates: start: 20101225, end: 20101225
  5. EVEPAR [Concomitant]
     Dosage: 2 MG / 0.035MG

REACTIONS (2)
  - TACHYCARDIA [None]
  - LACTIC ACIDOSIS [None]
